FAERS Safety Report 18469105 (Version 2)
Quarter: 2020Q4

REPORT INFORMATION
  Report Type: Spontaneous
  Country: CH (occurrence: CH)
  Receive Date: 20201105
  Receipt Date: 20201117
  Transmission Date: 20210114
  Serious: Yes (Other)
  Sender: FDA-Public Use
  Company Number: CH-ASTRAZENECA-2020SF43017

PATIENT
  Age: 53 Year
  Sex: Male

DRUGS (14)
  1. ENRESTO [Concomitant]
     Dosage: FILMTABLETS 200 MG 168 PCS 1 - 0- 1
  2. ALDACTONE [Concomitant]
     Active Substance: SPIRONOLACTONE
     Dosage: 50 MG 50 PCS 1 - 0 - 0
  3. BISOPROLOL [Concomitant]
     Active Substance: BISOPROLOL
  4. FORXIGA [Suspect]
     Active Substance: DAPAGLIFLOZIN
     Indication: CARDIAC FAILURE
     Dosage: 5.0MG UNKNOWN
     Route: 048
  5. CELLCEPT [Concomitant]
     Active Substance: MYCOPHENOLATE MOFETIL\MYCOPHENOLATE MOFETIL HYDROCHLORIDE
     Dosage: 500 MG 150 PCS 1 - 0 - 1
  6. TORASEMIDE SANDOZ [Concomitant]
     Active Substance: TORSEMIDE
     Dosage: 5 MG 100 PCS 0 - 0 - 0 IF NEEDED
  7. ENTRESTO [Concomitant]
     Active Substance: SACUBITRIL\VALSARTAN
     Indication: CARDIAC FAILURE
     Dosage: TREATMENT ALREADY FOR 3 YEARS
     Route: 065
  8. SPIRICORT [Concomitant]
     Active Substance: PREDNISOLONE
     Dosage: 5 MG 100 PCS 1.5 - 0 - 0
  9. BACTRIM [Concomitant]
     Active Substance: SULFAMETHOXAZOLE\TRIMETHOPRIM
     Dosage: 50 PCS 1 - 0 - 0 3X WEEKLY
  10. MAGNESIUM SANDOZ [Concomitant]
     Dosage: 243 MG 40 PCS 0 - 0 - 1 IF NEEDED
  11. MARCOUMAR [Concomitant]
     Active Substance: PHENPROCOUMON
     Dosage: 3 MG 100 PCS 0 - 0 - X INR 2.0-3.0
  12. VI DE [Concomitant]
     Dosage: 3 DROPS 4500 U/ML 10 ML 0 - 0 - 0 SUNDAYS
  13. FORXIGA [Suspect]
     Active Substance: DAPAGLIFLOZIN
     Indication: CARDIAC FAILURE
     Route: 048
     Dates: start: 20200820
  14. COLPERMIN [Concomitant]
     Active Substance: PEPPERMINT OIL
     Dosage: KAPS 100 PCS 2 - 2 - 2 IF NEEDED

REACTIONS (6)
  - Thirst [Recovering/Resolving]
  - Hunger [Recovering/Resolving]
  - Dizziness [Recovering/Resolving]
  - Pollakiuria [Recovering/Resolving]
  - Weight decreased [Recovering/Resolving]
  - Blood pressure decreased [Recovering/Resolving]
